FAERS Safety Report 5199502-2 (Version None)
Quarter: 2006Q4

REPORT INFORMATION
  Report Type: 
  Country: None (occurrence: None)
  Receive Date: 20061229
  Receipt Date: 20061220
  Transmission Date: 20070319
  Serious: Yes (Hospitalization)
  Sender: FDA-Public Use
  Company Number: CIP06003004

PATIENT
  Age: 21 Year
  Sex: Female

DRUGS (7)
  1. ACTONEL [Suspect]
     Indication: OSTEOPOROSIS
     Dosage: 2.5 MG DAILY, ORAL
     Route: 048
     Dates: start: 20061002, end: 20061031
  2. PREDONINE /00016201/(PREDNISOLONE) [Concomitant]
  3. PERSANTIN [Concomitant]
  4. SUCRALFATE [Concomitant]
  5. CEFDINIR [Concomitant]
  6. LOSARTAN POTASSIUM [Concomitant]
  7. BREDININ (MIZORIBINE) [Concomitant]

REACTIONS (6)
  - CONDITION AGGRAVATED [None]
  - HAEMOGLOBIN DECREASED [None]
  - PLATELET COUNT DECREASED [None]
  - RED BLOOD CELL ABNORMALITY [None]
  - SYSTEMIC LUPUS ERYTHEMATOSUS [None]
  - THROMBOTIC THROMBOCYTOPENIC PURPURA [None]
